FAERS Safety Report 16073422 (Version 2)
Quarter: 2019Q2

REPORT INFORMATION
  Report Type: Spontaneous
  Country: IN (occurrence: IN)
  Receive Date: 20190314
  Receipt Date: 20190517
  Transmission Date: 20190711
  Serious: Yes (Hospitalization, Other)
  Sender: FDA-Public Use
  Company Number: IN-PFIZER INC-2019106479

PATIENT
  Age: 31 Year
  Sex: Male
  Weight: 63 kg

DRUGS (4)
  1. SUPRADYN [MINERALS NOS;VITAMINS NOS] [Concomitant]
     Dosage: 1 DF, 1X/DAY (FOR 6 WEEKS)
  2. PANTOPRAZOLE SODIUM. [Concomitant]
     Active Substance: PANTOPRAZOLE SODIUM
     Dosage: 40 MG, 1X/DAY (FOR 6 WEEKS)
  3. FOLRITE [Concomitant]
     Dosage: 5 MG, 1X/DAY (FRO 6 WEEKS)
  4. SUTENT [Suspect]
     Active Substance: SUNITINIB MALATE
     Indication: METASTATIC RENAL CELL CARCINOMA
     Dosage: 50 MG, ONCE DAILY (2 WEEKS ON AND 1 WEEK OFF)
     Route: 048
     Dates: start: 20180611

REACTIONS (13)
  - Diarrhoea [Recovered/Resolved]
  - Neoplasm progression [Unknown]
  - Pain [Unknown]
  - Skin exfoliation [Unknown]
  - Hypothyroidism [Unknown]
  - Mucosal inflammation [Unknown]
  - Heart rate decreased [Unknown]
  - Asthenia [Unknown]
  - Platelet count decreased [Unknown]
  - Rash maculo-papular [Unknown]
  - Epistaxis [Unknown]
  - Hypertension [Unknown]
  - Anaemia [Unknown]
